FAERS Safety Report 15532056 (Version 1)
Quarter: 2018Q4

REPORT INFORMATION
  Report Type: Spontaneous
  Country: CN (occurrence: CN)
  Receive Date: 20181019
  Receipt Date: 20181019
  Transmission Date: 20190205
  Serious: Yes (Other)
  Sender: FDA-Public Use
  Company Number: CN-JNJFOC-20181017470

PATIENT
  Age: 2 Year
  Sex: Male
  Weight: 11 kg

DRUGS (2)
  1. MOTRIN [Suspect]
     Active Substance: IBUPROFEN
     Route: 048
  2. MOTRIN [Suspect]
     Active Substance: IBUPROFEN
     Indication: HERPANGINA
     Route: 048
     Dates: start: 20180823, end: 20180823

REACTIONS (4)
  - Product use in unapproved indication [Unknown]
  - Off label use [Unknown]
  - Pruritus [Recovering/Resolving]
  - Rash [Recovering/Resolving]

NARRATIVE: CASE EVENT DATE: 20180823
